APPROVED DRUG PRODUCT: LAMOTRIGINE
Active Ingredient: LAMOTRIGINE
Strength: 300MG
Dosage Form/Route: TABLET, EXTENDED RELEASE;ORAL
Application: A201791 | Product #006 | TE Code: AB
Applicant: PH HEALTH LTD
Approved: Jan 18, 2013 | RLD: No | RS: No | Type: RX